FAERS Safety Report 6480856-1 (Version None)
Quarter: 2009Q4

REPORT INFORMATION
  Report Type: 
  Country: None (occurrence: None)
  Receive Date: 20091208
  Receipt Date: 20090306
  Transmission Date: 20100525
  Serious: No
  Sender: FDA-Public Use
  Company Number: US-AMGEN-KDL337347

PATIENT
  Sex: Female

DRUGS (3)
  1. ENBREL [Suspect]
     Indication: RHEUMATOID ARTHRITIS
     Route: 058
     Dates: start: 20070601, end: 20080501
  2. PLAQUENIL [Concomitant]
     Dates: start: 20061001
  3. METHOTREXATE [Concomitant]
     Route: 048
     Dates: start: 20061201

REACTIONS (2)
  - ABASIA [None]
  - ARTHRALGIA [None]
